FAERS Safety Report 10695067 (Version 2)
Quarter: 2015Q1

REPORT INFORMATION
  Report Type: Spontaneous
  Country: US (occurrence: None)
  Receive Date: 20150105
  Receipt Date: 20150114
  Transmission Date: 20150721
  Serious: Yes (Other)
  Sender: FDA-Public Use
  Company Number: 2014-US-017194

PATIENT
  Age: 47 Year
  Sex: Female
  Weight: 108.8 kg

DRUGS (7)
  1. ADDERALL (AMFETAMINE ASPARTATE, AMFETAMINE SULFATE, DEXAMFETAMINE SCCARATE, DEXAMFETAMINE SULFATE) [Concomitant]
  2. XYREM [Suspect]
     Active Substance: SODIUM OXYBATE
     Indication: NARCOLEPSY
     Route: 048
     Dates: start: 20141225
  3. ALBUTEROL (SALBUTAMOL SULFATE) [Concomitant]
  4. XYREM [Suspect]
     Active Substance: SODIUM OXYBATE
     Indication: CATAPLEXY
     Route: 048
     Dates: start: 20141225
  5. LEVOTHYROXINE (LEVOTHYROXINE) [Concomitant]
     Active Substance: LEVOTHYROXINE
  6. LORATIDINE (LORATIDINE) [Concomitant]
  7. CELEXA [Concomitant]
     Active Substance: CITALOPRAM HYDROBROMIDE

REACTIONS (6)
  - Seizure like phenomena [None]
  - Therapeutic response changed [None]
  - Stress [None]
  - Somnolence [None]
  - Condition aggravated [None]
  - Bronchitis [None]

NARRATIVE: CASE EVENT DATE: 201412
